FAERS Safety Report 9450842 (Version 1)
Quarter: 2013Q3

REPORT INFORMATION
  Report Type: Spontaneous
  Country: US (occurrence: US)
  Receive Date: 20130809
  Receipt Date: 20130809
  Transmission Date: 20140515
  Serious: Yes (Hospitalization)
  Sender: FDA-Public Use
  Company Number: US-PFIZER INC-2013231707

PATIENT
  Age: 66 Year
  Sex: Male

DRUGS (2)
  1. PACLITAXEL [Suspect]
     Indication: BLADDER CANCER
     Dosage: 80 MG/M2 AND THEN 64 MG/M2 CYCLICALLY
     Route: 042
     Dates: start: 20130617, end: 20130722
  2. PAZOPANIB [Suspect]
     Indication: BLADDER CANCER
     Dosage: 600 MG, UNK
     Route: 048
     Dates: start: 20130617, end: 20130722

REACTIONS (4)
  - Febrile neutropenia [Unknown]
  - Fatigue [Unknown]
  - Pyrexia [Unknown]
  - Infection [Unknown]
